FAERS Safety Report 6914968-2 (Version None)
Quarter: 2010Q3

REPORT INFORMATION
  Report Type: 
  Country: None (occurrence: None)
  Receive Date: 20100809
  Receipt Date: 20100730
  Transmission Date: 20110219
  Serious: Yes (Hospitalization)
  Sender: FDA-Public Use
  Company Number: GR-ABBOTT-10P-066-0660745-00

PATIENT
  Age: 52 Year
  Sex: Female
  Weight: 75.5 kg

DRUGS (3)
  1. HUMIRA [Suspect]
     Indication: RHEUMATOID ARTHRITIS
     Route: 058
     Dates: start: 20080512
  2. ATACAND HCT [Concomitant]
     Indication: HYPERTENSION
     Route: 048
     Dates: start: 20070101
  3. LECARDIP [Concomitant]
     Indication: HYPERTENSION
     Dosage: 40, 1 TABLET
     Route: 048
     Dates: start: 20070101

REACTIONS (2)
  - ABDOMINAL PAIN LOWER [None]
  - POSTOPERATIVE HERNIA [None]
